FAERS Safety Report 9840988 (Version 2)
Quarter: 2014Q1

REPORT INFORMATION
  Report Type: Spontaneous
  Country: US (occurrence: US)
  Receive Date: 20140124
  Receipt Date: 20140130
  Transmission Date: 20141002
  Serious: Yes (Hospitalization)
  Sender: FDA-Public Use
  Company Number: US-ASTELLAS-2014US000587

PATIENT
  Age: 70 Year
  Sex: Male

DRUGS (1)
  1. XTANDI [Suspect]
     Indication: PROSTATE CANCER
     Dosage: 160 MG, UID/QD
     Route: 048
     Dates: start: 201311

REACTIONS (14)
  - Abasia [Unknown]
  - Brain oedema [Unknown]
  - Pulmonary oedema [Unknown]
  - Pyrexia [Unknown]
  - Diarrhoea [Unknown]
  - Asthenia [Unknown]
  - Fatigue [Unknown]
  - Confusional state [Unknown]
  - Tremor [Unknown]
  - Myalgia [Unknown]
  - Oedema peripheral [Unknown]
  - Muscular weakness [Unknown]
  - Viral infection [Recovered/Resolved]
  - Memory impairment [Unknown]
